FAERS Safety Report 9024524 (Version 3)
Quarter: 2013Q2

REPORT INFORMATION
  Report Type: Spontaneous
  Country: US (occurrence: US)
  Receive Date: 20130121
  Receipt Date: 20130419
  Transmission Date: 20140414
  Serious: No
  Sender: FDA-Public Use
  Company Number: US-009507513-1301USA006032

PATIENT
  Age: 38 Year
  Sex: Female
  Weight: 73.47 kg

DRUGS (7)
  1. PEGINTRON [Suspect]
     Indication: HEPATITIS C
     Dosage: 120 MICROGRAM, QW
     Route: 058
  2. RIBASPHERE [Suspect]
  3. PAXIL [Concomitant]
  4. KLONOPIN [Concomitant]
  5. VALIUM [Concomitant]
  6. ATARAX (ALPRAZOLAM) [Concomitant]
  7. IMITREX (SUMATRIPTAN SUCCINATE) [Concomitant]

REACTIONS (5)
  - Injection site pain [Recovering/Resolving]
  - Nausea [Recovering/Resolving]
  - Device malfunction [Unknown]
  - Underdose [Unknown]
  - Medical device complication [Unknown]
